FAERS Safety Report 17504093 (Version 1)
Quarter: 2020Q1

REPORT INFORMATION
  Report Type: Spontaneous
  Country: AU (occurrence: AU)
  Receive Date: 20200305
  Receipt Date: 20200305
  Transmission Date: 20200409
  Serious: Yes (Hospitalization, Other)
  Sender: FDA-Public Use
  Company Number: AU-UCBSA-2020008503

PATIENT
  Age: 2 Year
  Sex: Female
  Weight: 11.5 kg

DRUGS (2)
  1. KEPPRA [Suspect]
     Active Substance: LEVETIRACETAM
     Indication: PARTIAL SEIZURES
     Dosage: 1.5 MILLILITER, 2X/DAY (BID)
     Route: 048
  2. KEPPRA [Suspect]
     Active Substance: LEVETIRACETAM
     Dosage: 2 MILLILITER, 2X/DAY (BID)
     Route: 048
     Dates: start: 2018

REACTIONS (2)
  - Partial seizures [Not Recovered/Not Resolved]
  - Aggression [Not Recovered/Not Resolved]
